FAERS Safety Report 9100878 (Version 2)
Quarter: 2013Q1

REPORT INFORMATION
  Report Type: Spontaneous
  Country: ES (occurrence: ES)
  Receive Date: 20130215
  Receipt Date: 20130301
  Transmission Date: 20140127
  Serious: Yes (Death, Hospitalization, Other)
  Sender: FDA-Public Use
  Company Number: PHHY2013ES014617

PATIENT
  Age: 55 Year
  Sex: Male

DRUGS (2)
  1. TEGRETOL [Suspect]
     Dosage: 200 MG, TID
     Dates: start: 1990
  2. DEPAKINE [Interacting]
     Indication: EPILEPSY
     Dosage: 500 MG, TID
     Route: 048
     Dates: start: 1990

REACTIONS (4)
  - Septic shock [Fatal]
  - Pancytopenia [Fatal]
  - Febrile neutropenia [Fatal]
  - Drug interaction [Unknown]
